FAERS Safety Report 11650801 (Version 3)
Quarter: 2015Q4

REPORT INFORMATION
  Report Type: Spontaneous
  Country: US (occurrence: US)
  Receive Date: 20151021
  Receipt Date: 20151228
  Transmission Date: 20160304
  Serious: Yes (Hospitalization, Other)
  Sender: FDA-Public Use
  Company Number: US-009507513-1510USA009399

PATIENT
  Age: 75 Year
  Sex: Male
  Weight: 65.76 kg

DRUGS (2)
  1. METFORMIN HYDROCHLORIDE. [Concomitant]
     Active Substance: METFORMIN HYDROCHLORIDE
     Indication: DIABETES MELLITUS
     Dosage: 500 MG, TID
     Route: 048
  2. JANUVIA [Suspect]
     Active Substance: SITAGLIPTIN PHOSPHATE
     Indication: DIABETES MELLITUS
     Dosage: 50 MG, QD
     Route: 048
     Dates: start: 20100225, end: 20130604

REACTIONS (18)
  - Hypertension [Unknown]
  - Nephrolithiasis [Recovered/Resolved]
  - Helicobacter gastritis [Recovered/Resolved]
  - Weight decreased [Unknown]
  - Haemorrhoids [Unknown]
  - Hypercholesterolaemia [Unknown]
  - Pancreatitis chronic [Recovered/Resolved]
  - Throat irritation [Unknown]
  - Cataract [Recovered/Resolved]
  - Herpes zoster [Recovered/Resolved]
  - Small intestine carcinoma [Recovered/Resolved]
  - Melanosis coli [Unknown]
  - Neuroendocrine tumour [Recovered/Resolved]
  - Dysphagia [Unknown]
  - Levator syndrome [Unknown]
  - Iron deficiency anaemia [Unknown]
  - Gastritis [Unknown]
  - Constipation [Unknown]

NARRATIVE: CASE EVENT DATE: 2010
